FAERS Safety Report 9278581 (Version 3)
Quarter: 2013Q2

REPORT INFORMATION
  Report Type: Spontaneous
  Country: US (occurrence: US)
  Receive Date: 20130508
  Receipt Date: 20130529
  Transmission Date: 20140414
  Serious: No
  Sender: FDA-Public Use
  Company Number: US-PFIZER INC-2013142682

PATIENT
  Age: 41 Year
  Sex: Female
  Weight: 138 kg

DRUGS (3)
  1. LYRICA [Suspect]
     Indication: NEURALGIA
     Dosage: 75 MG, 2X/DAY
     Route: 048
     Dates: end: 201303
  2. METFORMIN [Concomitant]
     Indication: DIABETES MELLITUS
     Dosage: 1000 MG, 2X/DAY
  3. INSULIN [Concomitant]
     Indication: DIABETES MELLITUS
     Dosage: UNK

REACTIONS (3)
  - Drug withdrawal syndrome [Recovered/Resolved]
  - Decreased activity [Recovering/Resolving]
  - Pain [Unknown]
